FAERS Safety Report 16799129 (Version 2)
Quarter: 2019Q3

REPORT INFORMATION
  Report Type: Spontaneous
  Country: US (occurrence: US)
  Receive Date: 20190912
  Receipt Date: 20190919
  Transmission Date: 20191005
  Serious: Yes (Other)
  Sender: FDA-Public Use
  Company Number: US-PFIZER INC-2019390762

PATIENT
  Age: 78 Year
  Sex: Female
  Weight: 45.81 kg

DRUGS (4)
  1. VYNDAQEL [Suspect]
     Active Substance: TAFAMIDIS MEGLUMINE
     Indication: AMYLOIDOSIS
     Dosage: 80 MG, 1X/DAY
     Route: 048
     Dates: start: 20190821, end: 20190904
  2. METOPROLOL. [Concomitant]
     Active Substance: METOPROLOL
     Indication: BLOOD PRESSURE ABNORMAL
     Dosage: 50 MG, DAILY
     Route: 048
  3. BENADRYL [Suspect]
     Active Substance: DIPHENHYDRAMINE HYDROCHLORIDE
     Dosage: 25 MG, 1X/DAY (AM)
     Route: 048
  4. ELIQUIS [Concomitant]
     Active Substance: APIXABAN
     Indication: ANTICOAGULANT THERAPY
     Dosage: 2.5 MG, 2X/DAY
     Route: 048

REACTIONS (3)
  - Rash [Recovered/Resolved]
  - Urticaria [Unknown]
  - Chest discomfort [Unknown]

NARRATIVE: CASE EVENT DATE: 2019
